FAERS Safety Report 16960864 (Version 1)
Quarter: 2019Q4

REPORT INFORMATION
  Report Type: Spontaneous
  Country: US (occurrence: US)
  Receive Date: 20191025
  Receipt Date: 20191025
  Transmission Date: 20200122
  Serious: No
  Sender: FDA-Public Use
  Company Number: US-AMGEN-USASP2019172212

PATIENT
  Sex: Male

DRUGS (1)
  1. PROLIA [Suspect]
     Active Substance: DENOSUMAB
     Indication: ANDROGEN THERAPY
     Dosage: 60 MILLIGRAM
     Route: 065

REACTIONS (5)
  - Off label use [Unknown]
  - Dizziness [Unknown]
  - Constipation [Unknown]
  - Paraesthesia [Unknown]
  - Asthenia [Unknown]
